FAERS Safety Report 12028493 (Version 2)
Quarter: 2016Q2

REPORT INFORMATION
  Report Type: Spontaneous
  Country: US (occurrence: US)
  Receive Date: 20160207
  Receipt Date: 20160412
  Transmission Date: 20160815
  Serious: No
  Sender: FDA-Public Use
  Company Number: US-ASTRAZENECA-2016SE12450

PATIENT
  Sex: Male
  Weight: 108.9 kg

DRUGS (8)
  1. AMLODIPINE [Concomitant]
     Active Substance: AMLODIPINE BESYLATE
     Indication: HYPERTENSION
     Route: 048
     Dates: start: 2005
  2. ATORVASTATIN [Concomitant]
     Active Substance: ATORVASTATIN
     Indication: HYPERTENSION
     Route: 048
     Dates: start: 2005
  3. LUBEMIR [Concomitant]
     Indication: DIABETES MELLITUS
     Route: 058
  4. CHLORTHATADONE [Concomitant]
     Indication: HYPERTENSION
     Route: 048
     Dates: start: 2005
  5. BYDUREON [Suspect]
     Active Substance: EXENATIDE
     Indication: DIABETES MELLITUS
     Dosage: 2 MG 4 COUNT VIAL,ONCE A WEEK
     Route: 058
     Dates: start: 2015
  6. RAMIPRIL. [Concomitant]
     Active Substance: RAMIPRIL
     Indication: HYPERTENSION
     Route: 048
     Dates: start: 2005
  7. HUMALOG [Concomitant]
     Active Substance: INSULIN LISPRO
     Indication: DIABETES MELLITUS
     Route: 058
  8. METFORMIN [Concomitant]
     Active Substance: METFORMIN HYDROCHLORIDE
     Indication: DIABETES MELLITUS
     Route: 058

REACTIONS (4)
  - Abdominal discomfort [Recovered/Resolved]
  - Injection site haemorrhage [Not Recovered/Not Resolved]
  - Product quality issue [Unknown]
  - Underdose [Unknown]
